FAERS Safety Report 4862341-3 (Version None)
Quarter: 2005Q4

REPORT INFORMATION
  Report Type: 
  Country: None (occurrence: None)
  Receive Date: 20051221
  Receipt Date: 20040319
  Transmission Date: 20060501
  Serious: Yes (Death, Hospitalization)
  Sender: FDA-Public Use
  Company Number: US-KINGPHARMUSA00001-K200400408

PATIENT
  Age: 81 Year
  Sex: Male

DRUGS (8)
  1. ALTACE [Suspect]
     Dosage: 5 MG, QD
     Route: 048
     Dates: start: 20030615, end: 20040201
  2. LASILIX [Suspect]
     Dosage: 40 MG, BID
     Route: 048
     Dates: start: 20030615
  3. LASILIX [Suspect]
     Dosage: 20 MG, QD
     Route: 042
  4. CIFLOX [Suspect]
     Dosage: 375 MG, BID
     Route: 048
     Dates: start: 20040201, end: 20040220
  5. CELEBREX [Suspect]
     Dosage: 1 U, QD
     Route: 048
     Dates: start: 20030615, end: 20040128
  6. AUGMENTIN [Suspect]
     Dosage: UNK, QD
     Route: 048
  7. NOZINAN [Concomitant]
  8. NITROGLYCERIN [Suspect]
     Indication: CARDIAC FAILURE

REACTIONS (12)
  - ACUTE RESPIRATORY FAILURE [None]
  - ANURIA [None]
  - BLOOD CREATININE INCREASED [None]
  - CARDIAC FAILURE [None]
  - DEHYDRATION [None]
  - HYPERKALAEMIA [None]
  - HYPONATRAEMIA [None]
  - HYPOTENSION [None]
  - LUNG DISORDER [None]
  - RENAL FAILURE ACUTE [None]
  - SEPSIS [None]
  - SOMNOLENCE [None]
